FAERS Safety Report 10954145 (Version 3)
Quarter: 2015Q2

REPORT INFORMATION
  Report Type: Spontaneous
  Country: GB (occurrence: GB)
  Receive Date: 20150325
  Receipt Date: 20150609
  Transmission Date: 20150821
  Serious: Yes (Other)
  Sender: FDA-Public Use
  Company Number: GB-GILEAD-2015-0144564

PATIENT
  Age: 54 Year
  Sex: Female

DRUGS (12)
  1. LANSOPRAZOLE. [Concomitant]
     Active Substance: LANSOPRAZOLE
     Dosage: 30 MG, BID
  2. ISOTARD XL [Concomitant]
     Dosage: 60 MG, QD
  3. BECLOMETHASONE                     /00212602/ [Concomitant]
  4. GTN [Concomitant]
     Active Substance: NITROGLYCERIN
  5. PARACETAMOL [Concomitant]
     Active Substance: ACETAMINOPHEN
  6. ASPIRIN                            /00002701/ [Concomitant]
     Active Substance: ASPIRIN
     Dosage: 75 MG, QD
  7. RAMIPRIL. [Concomitant]
     Active Substance: RAMIPRIL
     Indication: BLOOD PRESSURE MANAGEMENT
     Dosage: 2.5 MG, QD
  8. FORMOTEROL [Concomitant]
     Active Substance: FORMOTEROL
  9. RANOLAZINE [Suspect]
     Active Substance: RANOLAZINE
     Indication: ANGINA PECTORIS
     Dosage: 375 MG, BID
     Route: 065
     Dates: start: 20150312
  10. BENDROFLUAZIDE [Concomitant]
     Active Substance: BENDROFLUMETHIAZIDE
     Indication: BLOOD PRESSURE MANAGEMENT
     Dosage: 2.5 MG, QD
     Route: 065
  11. NICORANDIL [Concomitant]
     Active Substance: NICORANDIL
     Dosage: 10 MG, BID
  12. SALBUTAMOL                         /00139502/ [Concomitant]
     Route: 055

REACTIONS (4)
  - Jaundice [Recovered/Resolved]
  - Abdominal distension [Recovered/Resolved]
  - Tinnitus [Recovered/Resolved]
  - Feeling abnormal [Recovered/Resolved]

NARRATIVE: CASE EVENT DATE: 20150324
